FAERS Safety Report 25922642 (Version 2)
Quarter: 2025Q4

REPORT INFORMATION
  Report Type: Spontaneous
  Country: US (occurrence: US)
  Receive Date: 20251015
  Receipt Date: 20251105
  Transmission Date: 20260118
  Serious: Yes (Other)
  Sender: TEVA
  Company Number: US-TEVA-VS-3379738

PATIENT
  Age: 14 Year
  Sex: Female

DRUGS (9)
  1. MYCOPHENOLATE MOFETIL [Suspect]
     Active Substance: MYCOPHENOLATE MOFETIL
     Indication: Morphoea
     Dosage: RECEIVED INCREASING DOSES
     Route: 065
  2. MYCOPHENOLATE MOFETIL [Suspect]
     Active Substance: MYCOPHENOLATE MOFETIL
     Indication: Morphoea
     Route: 065
  3. MYCOPHENOLATE MOFETIL [Suspect]
     Active Substance: MYCOPHENOLATE MOFETIL
     Indication: Morphoea
     Route: 065
  4. SEMAGLUTIDE [Suspect]
     Active Substance: SEMAGLUTIDE
     Indication: Weight increased
     Route: 065
  5. METHOTREXATE [Suspect]
     Active Substance: METHOTREXATE
     Indication: Morphoea
     Route: 065
  6. METHOTREXATE [Suspect]
     Active Substance: METHOTREXATE
     Indication: Morphoea
     Dosage: RECEIVED INCREASING DOSES
     Route: 065
  7. METHOTREXATE [Suspect]
     Active Substance: METHOTREXATE
     Indication: Morphoea
     Route: 065
  8. TOCILIZUMAB [Suspect]
     Active Substance: TOCILIZUMAB
     Indication: Morphoea
     Dosage: RECEIVED EVERY OTHER WEEK
     Route: 065
  9. METHYLPREDNISOLONE SODIUM SUCCINATE [Suspect]
     Active Substance: METHYLPREDNISOLONE SODIUM SUCCINATE
     Indication: Morphoea
     Dosage: PULSE DOSING
     Route: 065

REACTIONS (3)
  - Drug ineffective [Unknown]
  - Weight increased [Unknown]
  - Therapeutic response unexpected [Unknown]
